FAERS Safety Report 8157231-7 (Version None)
Quarter: 2012Q1

REPORT INFORMATION
  Report Type: 
  Country: None (occurrence: None)
  Receive Date: 20120222
  Receipt Date: 20120222
  Transmission Date: 20120608
  Serious: Yes (Hospitalization, Other)
  Sender: FDA-Public Use
  Company Number: None

PATIENT
  Age: 47 Year
  Sex: Male
  Weight: 127 kg

DRUGS (2)
  1. XARELTO [Suspect]
     Indication: DEEP VEIN THROMBOSIS
     Dosage: 20.0 MG
     Route: 048
     Dates: start: 20111219, end: 20120124
  2. CLINDAMYCIN [Concomitant]

REACTIONS (1)
  - RENAL FAILURE ACUTE [None]
